FAERS Safety Report 5357233-X (Version None)
Quarter: 2007Q2

REPORT INFORMATION
  Report Type: 
  Country: None (occurrence: None)
  Receive Date: 20070614
  Receipt Date: 20070607
  Transmission Date: 20071010
  Serious: Yes (Death)
  Sender: FDA-Public Use
  Company Number: DE-JNJFOC-20070505435

PATIENT
  Age: 76 Year
  Sex: Female

DRUGS (9)
  1. TAVANIC [Suspect]
     Indication: INFECTION
     Route: 065
  2. GEMCITABINE [Suspect]
     Indication: PANCREATIC CARCINOMA
     Route: 042
  3. RAMIPRIL [Concomitant]
     Route: 048
  4. REFOBACIN [Concomitant]
     Route: 042
  5. DURAGESIC-100 [Concomitant]
     Route: 065
  6. CONCOR [Concomitant]
     Route: 048
  7. TORSEMIDE [Concomitant]
     Route: 065
  8. KALINOR [Concomitant]
     Route: 065
  9. ROCEPHIN [Concomitant]
     Route: 042

REACTIONS (3)
  - DEEP VEIN THROMBOSIS [None]
  - MALIGNANT NEOPLASM PROGRESSION [None]
  - OEDEMA PERIPHERAL [None]
